FAERS Safety Report 16059525 (Version 1)
Quarter: 2019Q1

REPORT INFORMATION
  Report Type: Report from Study
  Country: IT (occurrence: IT)
  Receive Date: 20190311
  Receipt Date: 20190311
  Transmission Date: 20190418
  Serious: Yes (Hospitalization)
  Sender: FDA-Public Use
  Company Number: IT-COLLEGIUM PHARMACEUTICAL, INC.-IT-2019COL000333

PATIENT
  Age: 91 Year
  Sex: Female

DRUGS (1)
  1. TAPENTADOL EXTENDED RELEASE [Suspect]
     Active Substance: TAPENTADOL
     Indication: BONE PAIN
     Dosage: 100 MG, QD
     Route: 048
     Dates: end: 20190208

REACTIONS (4)
  - Depressed level of consciousness [Recovered/Resolved]
  - Oliguria [Recovered/Resolved]
  - Dehydration [Recovered/Resolved]
  - Hypokinesia [Recovered/Resolved]

NARRATIVE: CASE EVENT DATE: 20190202
